FAERS Safety Report 9086875 (Version 1)
Quarter: 2013Q1

REPORT INFORMATION
  Report Type: Report from Study
  Country: US (occurrence: US)
  Receive Date: 20130130
  Receipt Date: 20130130
  Transmission Date: 20140127
  Serious: No
  Sender: FDA-Public Use
  Company Number: US-ABBOTT-12P-163-0978725-00

PATIENT
  Sex: Female
  Weight: 78.09 kg

DRUGS (2)
  1. HUMIRA [Suspect]
     Indication: COLITIS ULCERATIVE
     Dates: start: 201206
  2. ASACOL [Concomitant]
     Indication: COLITIS ULCERATIVE

REACTIONS (4)
  - Drug dose omission [Recovered/Resolved]
  - Haematochezia [Recovered/Resolved]
  - Off label use [Unknown]
  - Colitis ulcerative [Unknown]
